FAERS Safety Report 6256247-5 (Version None)
Quarter: 2009Q3

REPORT INFORMATION
  Report Type: 
  Country: None (occurrence: None)
  Receive Date: 20090706
  Receipt Date: 20090501
  Transmission Date: 20100115
  Serious: No
  Sender: FDA-Public Use
  Company Number: A0781648A

PATIENT
  Age: 72 Year
  Sex: Female

DRUGS (8)
  1. ADVAIR HFA [Suspect]
     Indication: CHRONIC OBSTRUCTIVE PULMONARY DISEASE
     Route: 055
     Dates: start: 20090424
  2. SPIRIVA [Concomitant]
  3. ALBUTEROL NEBULIZED [Concomitant]
  4. TRACLEER [Concomitant]
  5. FOSAMAX [Concomitant]
  6. SIMVASTATIN [Concomitant]
  7. NEURONTIN [Concomitant]
  8. TYLENOL (CAPLET) [Concomitant]

REACTIONS (2)
  - DIZZINESS [None]
  - EXPIRED DRUG ADMINISTERED [None]
